FAERS Safety Report 4623984-5 (Version None)
Quarter: 2005Q1

REPORT INFORMATION
  Report Type: 
  Country: None (occurrence: None)
  Receive Date: 20050331
  Receipt Date: 20031215
  Transmission Date: 20050727
  Serious: Yes (Other)
  Sender: FDA-Public Use
  Company Number: US-GLAXOSMITHKLINE-A0443144A

PATIENT
  Age: 62 Year
  Sex: Female
  Weight: 70.9 kg

DRUGS (4)
  1. COMMIT [Suspect]
     Indication: SMOKING CESSATION THERAPY
     Route: 002
     Dates: start: 20031208, end: 20031215
  2. LIPITOR [Concomitant]
  3. FIBER [Concomitant]
  4. VITAMIN [Concomitant]

REACTIONS (33)
  - ASTHENIA [None]
  - BLOOD IRON DECREASED [None]
  - COLONIC POLYP [None]
  - DIVERTICULITIS [None]
  - DIVERTICULUM INTESTINAL [None]
  - DIZZINESS [None]
  - DYSPEPSIA [None]
  - DYSPNOEA [None]
  - DYSSTASIA [None]
  - ENDOSCOPY UPPER GASTROINTESTINAL TRACT ABNORMAL [None]
  - FAECAL OCCULT BLOOD POSITIVE [None]
  - FAECES DISCOLOURED [None]
  - FATIGUE [None]
  - FEELING ABNORMAL [None]
  - GASTRITIS [None]
  - GASTROINTESTINAL HAEMORRHAGE [None]
  - HAEMATOCRIT DECREASED [None]
  - HAEMORRHAGE [None]
  - HELICOBACTER GASTRITIS [None]
  - HYPERPLASIA [None]
  - IRON DEFICIENCY ANAEMIA [None]
  - LACERATION [None]
  - MALLORY-WEISS SYNDROME [None]
  - MEDICATION ERROR [None]
  - METAPLASIA [None]
  - NAUSEA [None]
  - ORAL DISCOMFORT [None]
  - RED BLOOD CELL COUNT DECREASED [None]
  - REFLUX GASTRITIS [None]
  - SLUGGISHNESS [None]
  - THROAT IRRITATION [None]
  - TREMOR [None]
  - VOMITING [None]
